FAERS Safety Report 9995201 (Version 2)
Quarter: 2014Q2

REPORT INFORMATION
  Report Type: Spontaneous
  Country: US (occurrence: None)
  Receive Date: 20140214
  Receipt Date: 20140505
  Transmission Date: 20141212
  Serious: No
  Sender: FDA-Public Use
  Company Number: US-014378

PATIENT
  Age: 58 Year
  Sex: Female

DRUGS (1)
  1. PICO-SALAX [Suspect]
     Indication: BOWEL PREPARATION
     Dosage: FIRST DOSE: 4PM ON 14 DEC 2013; SECONDARY DOSE: 10 PM OF 14 DEC 2013. ORAL
     Route: 048
     Dates: start: 20131214, end: 20131214

REACTIONS (1)
  - Drug ineffective [None]
